FAERS Safety Report 6177126-8 (Version None)
Quarter: 2009Q2

REPORT INFORMATION
  Report Type: 
  Country: None (occurrence: None)
  Receive Date: 20090504
  Receipt Date: 20060421
  Transmission Date: 20091009
  Serious: Yes (Hospitalization)
  Sender: FDA-Public Use
  Company Number: FR-BRISTOL-MYERS SQUIBB COMPANY-12624722

PATIENT
  Age: 54 Year
  Sex: Female

DRUGS (6)
  1. PERFALGAN IV [Suspect]
     Route: 042
     Dates: start: 20030911, end: 20030911
  2. CEFAZOLIN [Suspect]
     Route: 042
     Dates: start: 20030911, end: 20030911
  3. TRACRIUM [Suspect]
     Route: 042
     Dates: start: 20030911, end: 20030911
  4. HYPNOVEL [Suspect]
     Route: 042
     Dates: start: 20031111, end: 20030911
  5. DIPRIVAN [Suspect]
     Route: 042
     Dates: start: 20030911, end: 20030911
  6. SUFENTA PRESERVATIVE FREE [Suspect]
     Route: 042
     Dates: start: 20030911, end: 20030911

REACTIONS (3)
  - BRADYCARDIA [None]
  - SHOCK [None]
  - VENTRICULAR FIBRILLATION [None]
